FAERS Safety Report 8431978-7 (Version None)
Quarter: 2012Q2

REPORT INFORMATION
  Report Type: 
  Country: None (occurrence: None)
  Receive Date: 20120613
  Receipt Date: 20110511
  Transmission Date: 20120825
  Serious: No
  Sender: FDA-Public Use
  Company Number: US-ASTRAZENECA-2008UW08023

PATIENT
  Age: 58 Year
  Sex: Male
  Weight: 72.6 kg

DRUGS (10)
  1. RHINOCORT [Suspect]
     Indication: RHINITIS
     Route: 045
     Dates: start: 20010101
  2. DOXEPIN [Concomitant]
  3. RHINOCORT [Suspect]
     Route: 045
     Dates: start: 20010101
  4. BENTYL [Concomitant]
  5. RHINOCORT [Suspect]
     Route: 045
     Dates: start: 20010101
  6. MECLIZINE [Concomitant]
  7. RHINOCORT [Suspect]
     Route: 045
     Dates: start: 20010101
  8. RHINOCORT [Suspect]
     Indication: VASOMOTOR RHINITIS
     Route: 045
     Dates: start: 20010101
  9. RHINOCORT [Suspect]
     Indication: MULTIPLE ALLERGIES
     Route: 045
     Dates: start: 20010101
  10. CLARITIN [Concomitant]

REACTIONS (6)
  - MUSCULAR WEAKNESS [None]
  - BURNING SENSATION [None]
  - SINUSITIS [None]
  - SKIN IRRITATION [None]
  - THERAPEUTIC RESPONSE DECREASED [None]
  - SINUS CONGESTION [None]
